FAERS Safety Report 16583122 (Version 3)
Quarter: 2019Q3

REPORT INFORMATION
  Report Type: Spontaneous
  Country: US (occurrence: US)
  Receive Date: 20190717
  Receipt Date: 20190927
  Transmission Date: 20191004
  Serious: No
  Sender: FDA-Public Use
  Company Number: US-PFIZER INC-2019303099

PATIENT
  Age: 50 Year
  Sex: Female

DRUGS (1)
  1. VENLAFAXINE HCL [Suspect]
     Active Substance: VENLAFAXINE HYDROCHLORIDE
     Dosage: UNK (ONLY TOOK 1 TABLET /CAPSULE)

REACTIONS (2)
  - Crying [Unknown]
  - Drug hypersensitivity [Unknown]
